FAERS Safety Report 8850027 (Version 1)
Quarter: 2012Q4

REPORT INFORMATION
  Report Type: 
  Country: US (occurrence: US)
  Receive Date: 20121019
  Receipt Date: 20121019
  Transmission Date: 20130627
  Serious: Yes (Hospitalization)
  Sender: FDA-Public Use
  Company Number: US-INCYTE CORPORATION-2012IN002097

PATIENT
  Age: 56 Year
  Sex: Female

DRUGS (2)
  1. JAKAFI [Suspect]
     Indication: LEUKAEMIA
     Dosage: 15 mg, bid
     Route: 048
  2. JAKAFI [Suspect]
     Indication: MYELOFIBROSIS

REACTIONS (2)
  - Syncope [Unknown]
  - Nausea [Unknown]
